FAERS Safety Report 15717758 (Version 1)
Quarter: 2018Q4

REPORT INFORMATION
  Report Type: Spontaneous
  Country: US (occurrence: US)
  Receive Date: 20181129
  Receipt Date: 20181129
  Transmission Date: 20190205
  Serious: No
  Sender: FDA-Public Use
  Company Number: None

PATIENT

DRUGS (3)
  1. EPINEPHRINE EPINEPHRINE (PEDS) [Suspect]
     Active Substance: EPINEPHRINE
  2. EPINEPHRINE EPINEPHRINE (ADULT) [Suspect]
     Active Substance: EPINEPHRINE
  3. EPINEPHRINE EPINEPHRINE [Suspect]
     Active Substance: EPINEPHRINE
     Dosage: ?          OTHER ROUTE:SQ OR IM?

REACTIONS (2)
  - Product label confusion [None]
  - Product packaging confusion [None]
